FAERS Safety Report 10998233 (Version 1)
Quarter: 2015Q2

REPORT INFORMATION
  Report Type: Spontaneous
  Country: JP (occurrence: None)
  Receive Date: 20150406
  Receipt Date: 20150406
  Transmission Date: 20150821
  Serious: Yes (Other)
  Sender: FDA-Public Use
  Company Number: A201314094

PATIENT
  Age: 75 Year
  Sex: Male
  Weight: 59 kg

DRUGS (6)
  1. EQUA (VILDAGLIPTIN) TABLET [Concomitant]
  2. MONILAC (LACTULOSE) SYRUP [Concomitant]
  3. ADEFOVIR DIPIVOXIL. [Suspect]
     Active Substance: ADEFOVIR DIPIVOXIL
     Indication: CHRONIC HEPATITIS B
     Route: 048
  4. KANAMYCIN (KANAMYCIN) CAPSULE [Concomitant]
  5. SELBEX (TEPRENONE) ORAL DRUG UNSPECIFIED FORM [Concomitant]
  6. LAMIVUDINE (LAMIVUDINE) TABLET [Suspect]
     Active Substance: LAMIVUDINE
     Indication: CHRONIC HEPATITIS B
     Route: 048
     Dates: start: 201104

REACTIONS (2)
  - Fanconi syndrome [None]
  - Rhabdomyolysis [None]

NARRATIVE: CASE EVENT DATE: 20131029
